FAERS Safety Report 8596060 (Version 3)
Quarter: 2013Q3

REPORT INFORMATION
  Report Type: Spontaneous
  Country: US (occurrence: US)
  Receive Date: 20120605
  Receipt Date: 20130926
  Transmission Date: 20140515
  Serious: No
  Sender: FDA-Public Use
  Company Number: US-ASTRAZENECA-2012SE35641

PATIENT
  Age: 58 Year
  Sex: Male
  Weight: 88.5 kg

DRUGS (28)
  1. NEXIUM [Suspect]
     Indication: GASTROOESOPHAGEAL REFLUX DISEASE
     Dosage: ONCE A DAY
     Route: 048
  2. NEXIUM [Suspect]
     Indication: GASTROOESOPHAGEAL REFLUX DISEASE
     Route: 048
     Dates: start: 20070604
  3. NEXIUM [Suspect]
     Indication: GASTROOESOPHAGEAL REFLUX DISEASE
     Route: 048
     Dates: start: 20110228
  4. LEXAPRO [Concomitant]
     Dates: start: 20110112
  5. LEXAPRO [Concomitant]
     Dates: start: 20070912
  6. CLONAZEPAM [Concomitant]
     Dates: start: 20110112
  7. REQUIP/  ROPINIROLE [Concomitant]
     Dates: start: 20110207
  8. REQUIP/  ROPINIROLE [Concomitant]
     Dates: start: 2007
  9. RANITIDINE [Concomitant]
     Dates: start: 20110329
  10. PRISTIQ ER [Concomitant]
     Dates: start: 20110428
  11. SINGULAIR [Concomitant]
     Dates: start: 20110428
  12. SINGULAIR [Concomitant]
     Route: 048
     Dates: start: 20071103
  13. PREDNISONE [Concomitant]
     Dates: start: 20110523
  14. CITALOPRAM [Concomitant]
     Dates: start: 20110523
  15. TRAZADONE [Concomitant]
     Dates: start: 20110523
  16. MELOXICAM [Concomitant]
     Dates: start: 20110523
  17. DIAZEPAM [Concomitant]
     Dates: start: 20110725
  18. HYDROCODO/APAP [Concomitant]
     Dosage: 5-500
     Dates: start: 20110725
  19. DEXILANT DR [Concomitant]
     Dates: start: 20111025
  20. TOPIRAMATE [Concomitant]
     Dates: start: 20120201
  21. TOPIRAMATE [Concomitant]
     Dates: start: 20071210
  22. TRAMADOL [Concomitant]
     Dates: start: 20120201
  23. IBUPROFEN IPI [Concomitant]
     Dates: start: 20110725
  24. PRILOSEC [Concomitant]
  25. ALKASELTZER [Concomitant]
  26. TUMS [Concomitant]
  27. SEROQUEL [Concomitant]
     Dates: start: 20071203
  28. BUSPIRONE [Concomitant]
     Dates: start: 20081123

REACTIONS (7)
  - Osteoporosis [Unknown]
  - Wrist fracture [Unknown]
  - Bone density decreased [Unknown]
  - Bone loss [Unknown]
  - Multiple fractures [Unknown]
  - Chronic obstructive pulmonary disease [Unknown]
  - Diabetes mellitus [Unknown]
